FAERS Safety Report 13977987 (Version 2)
Quarter: 2017Q3

REPORT INFORMATION
  Report Type: Spontaneous
  Country: PL (occurrence: PL)
  Receive Date: 20170915
  Receipt Date: 20170922
  Transmission Date: 20171128
  Serious: Yes (Death, Life-Threatening)
  Sender: FDA-Public Use
  Company Number: PL-B.I. PHARMACEUTICALS,INC./RIDGEFIELD-2017-BI-048809

PATIENT
  Age: 81 Year
  Sex: Female
  Weight: 60 kg

DRUGS (4)
  1. DOPAMINE [Concomitant]
     Active Substance: DOPAMINE\DOPAMINE HYDROCHLORIDE
     Indication: HYPOTONIA
     Route: 042
     Dates: start: 20170904, end: 20170907
  2. LEVONOR [Concomitant]
     Indication: HYPOTONIA
     Route: 042
     Dates: start: 20170904, end: 20170907
  3. AUGMENTIN [Concomitant]
     Active Substance: AMOXICILLIN\CLAVULANATE POTASSIUM
     Indication: HYPOTONIA
     Route: 042
     Dates: start: 20170904, end: 20170907
  4. PRADAXA [Suspect]
     Active Substance: DABIGATRAN ETEXILATE MESYLATE
     Indication: PRODUCT USED FOR UNKNOWN INDICATION
     Route: 065

REACTIONS (5)
  - Alanine aminotransferase increased [Fatal]
  - Haemorrhage intracranial [Unknown]
  - Hepatic failure [Fatal]
  - Aspartate aminotransferase increased [Fatal]
  - Cardiac disorder [Unknown]

NARRATIVE: CASE EVENT DATE: 20170904
